FAERS Safety Report 7704034-0 (Version None)
Quarter: 2011Q3

REPORT INFORMATION
  Report Type: 
  Country: None (occurrence: None)
  Receive Date: 20110818
  Receipt Date: 20110804
  Transmission Date: 20111222
  Serious: Yes (Death)
  Sender: FDA-Public Use
  Company Number: 1000022848

PATIENT
  Age: 83 Year
  Sex: Female

DRUGS (13)
  1. TOREM (TORASEMIDE) (TORASEMIDE) [Concomitant]
  2. ASS (ACETYLSALICYLIC ACID) (ACETYLSALICYLIC ACID) [Concomitant]
  3. MAGNETRANS (MAGNESIUM ASPARTATE) (TABLETS) (MAGNESIUM ASPARTATE) [Concomitant]
  4. MIRTAZAPINE [Suspect]
     Dosage: 15 MG (15 MG, 1 IN 1 D) ORAL
     Route: 048
     Dates: start: 20070313, end: 20070318
  5. ALLOPURINOL [Concomitant]
  6. EXELON (RIVASTIGMINE) (RIVASTIGMINE) [Concomitant]
  7. ESCITALOPRAM OXALATE [Suspect]
     Dosage: 5 MG (5 MG, 1 IN 1 D), ORAL
     Route: 048
     Dates: start: 20070221, end: 20070313
  8. ACTRAPHANE (HUMAN MIXTARD) (HUMAN MIXTARD) [Concomitant]
  9. PANTOZOL (PANTOPRAZOLE SODIUM SESQUIHYDRATE) (PANTOPRAZOLE SODIUM SESQ [Concomitant]
  10. LIMPTAR N (QUININE SULFATE) (QUININE SULFATE) [Concomitant]
  11. ENALAPRIL MALEATE [Concomitant]
  12. DOMINAL (PROTHIPENDYL HYDROCHLORIDE) [Suspect]
     Dosage: 80 MG (80 MG, 1 IN 1 D), ORAL
     Route: 048
     Dates: start: 20070221, end: 20070318
  13. BISOPROLOL FUMARATE [Concomitant]

REACTIONS (7)
  - HYPOTENSION [None]
  - NAUSEA [None]
  - HYPOPHAGIA [None]
  - SOMNOLENCE [None]
  - VOMITING [None]
  - PNEUMONIA [None]
  - RESTLESSNESS [None]
